FAERS Safety Report 6234205-4 (Version None)
Quarter: 2009Q2

REPORT INFORMATION
  Report Type: 
  Country: None (occurrence: None)
  Receive Date: 20090616
  Receipt Date: 20090605
  Transmission Date: 20091009
  Serious: Yes (Life-Threatening)
  Sender: FDA-Public Use
  Company Number: 1000006772

PATIENT
  Age: 62 Year
  Sex: Female

DRUGS (4)
  1. CITALOPRAM HYDROBROMIDE [Suspect]
  2. ZOLPIDEM TARTRATE [Concomitant]
  3. SEROQUEL [Concomitant]
  4. INTERNAL MEDICINE DRUGS NOS [Concomitant]

REACTIONS (2)
  - BLOOD ELECTROLYTES ABNORMAL [None]
  - RENAL FAILURE [None]
